FAERS Safety Report 6317060-3 (Version None)
Quarter: 2009Q3

REPORT INFORMATION
  Report Type: 
  Country: None (occurrence: None)
  Receive Date: 20090820
  Receipt Date: 20090810
  Transmission Date: 20100115
  Serious: Yes (Other)
  Sender: FDA-Public Use
  Company Number: US-PFIZER INC-2005095520

PATIENT
  Sex: Female
  Weight: 86.64 kg

DRUGS (9)
  1. LIPITOR [Suspect]
     Indication: BLOOD CHOLESTEROL INCREASED
     Dosage: 20 MG, 3X/DAY
     Route: 048
     Dates: start: 20040101, end: 20040101
  2. NORVASC [Concomitant]
     Route: 048
  3. TENEX [Concomitant]
     Route: 048
  4. POTASSIUM CHLORIDE [Concomitant]
     Route: 048
  5. DEMADEX [Concomitant]
     Route: 048
  6. ZIAC [Concomitant]
     Route: 048
  7. XANAX [Concomitant]
     Route: 048
  8. BENADRYL [Concomitant]
     Route: 048
  9. RESTORIL [Concomitant]
     Route: 048

REACTIONS (9)
  - ALANINE AMINOTRANSFERASE INCREASED [None]
  - ARTHROPATHY [None]
  - ASPARTATE AMINOTRANSFERASE INCREASED [None]
  - BLOOD ALKALINE PHOSPHATASE INCREASED [None]
  - CONTUSION [None]
  - FALL [None]
  - GAMMA-GLUTAMYLTRANSFERASE INCREASED [None]
  - MONOPLEGIA [None]
  - MUSCLE SPASMS [None]
